FAERS Safety Report 7239620-8 (Version None)
Quarter: 2011Q1

REPORT INFORMATION
  Report Type: 
  Country: None (occurrence: None)
  Receive Date: 20110122
  Receipt Date: 20100924
  Transmission Date: 20110831
  Serious: No
  Sender: FDA-Public Use
  Company Number: US-ALLERGAN-1012405US

PATIENT
  Age: 52 Year
  Sex: Female

DRUGS (2)
  1. MASCARA [Concomitant]
  2. LATISSE [Suspect]
     Indication: GROWTH OF EYELASHES
     Dosage: 1 GTT, QHS
     Route: 047
     Dates: start: 20100101

REACTIONS (1)
  - OCULAR HYPERAEMIA [None]
